FAERS Safety Report 5863044-9 (Version None)
Quarter: 2008Q3

REPORT INFORMATION
  Report Type: 
  Country: None (occurrence: None)
  Receive Date: 20080818
  Receipt Date: 20080505
  Transmission Date: 20090109
  Serious: No
  Sender: FDA-Public Use
  Company Number: WAES 0805USA00675

PATIENT
  Age: 49 Year
  Sex: Male
  Weight: 104.3273 kg

DRUGS (5)
  1. JANUVIA [Suspect]
     Indication: DIABETES MELLITUS
     Dosage: PO
     Route: 048
     Dates: start: 20070818, end: 20080429
  2. AVAPRO [Concomitant]
  3. LEXAPRO [Concomitant]
  4. TYLENOL (CAPLET) [Concomitant]
  5. METFORMIN HCL [Concomitant]

REACTIONS (2)
  - RASH PRURITIC [None]
  - SKIN INFECTION [None]
